FAERS Safety Report 16470485 (Version 3)
Quarter: 2019Q3

REPORT INFORMATION
  Report Type: Spontaneous
  Country: US (occurrence: US)
  Receive Date: 20190624
  Receipt Date: 20190701
  Transmission Date: 20191004
  Serious: Yes (Other)
  Sender: FDA-Public Use
  Company Number: US-ABBVIE-19P-163-2828157-00

PATIENT
  Age: 37 Year
  Sex: Male

DRUGS (1)
  1. ANDROGEL [Suspect]
     Active Substance: TESTOSTERONE
     Indication: HYPOGONADISM
     Dosage: ABDOMEN AND UPPER ARMS FOR ABOUT 6 MONTHS
     Route: 061

REACTIONS (4)
  - Choroidal effusion [Recovered/Resolved]
  - Chorioretinopathy [Recovering/Resolving]
  - Angle closure glaucoma [Recovering/Resolving]
  - Refraction disorder [Recovering/Resolving]
